FAERS Safety Report 4775947-7 (Version None)
Quarter: 2005Q3

REPORT INFORMATION
  Report Type: 
  Country: None (occurrence: None)
  Receive Date: 20050922
  Receipt Date: 20050830
  Transmission Date: 20060218
  Serious: Yes (Hospitalization)
  Sender: FDA-Public Use
  Company Number: JP-JPN-A20052047

PATIENT
  Age: 9 Year
  Sex: Female
  Weight: 35 kg

DRUGS (2)
  1. VALTREX [Suspect]
     Indication: VARICELLA
     Dosage: 500MG PER DAY
     Route: 048
     Dates: start: 20050829, end: 20050829
  2. ZOVIRAX [Suspect]
     Route: 048
     Dates: start: 20050830

REACTIONS (3)
  - ABDOMINAL PAIN UPPER [None]
  - DYSPNOEA [None]
  - GASTROENTERITIS [None]
